FAERS Safety Report 21570548 (Version 1)
Quarter: 2022Q4

REPORT INFORMATION
  Report Type: Spontaneous
  Country: FR (occurrence: None)
  Receive Date: 20221109
  Receipt Date: 20221109
  Transmission Date: 20230113
  Serious: Yes (Hospitalization)
  Sender: FDA-Public Use
  Company Number: 2022A351176

PATIENT
  Age: 61 Year
  Sex: Male

DRUGS (2)
  1. ESOMEPRAZOLE [Suspect]
     Active Substance: ESOMEPRAZOLE
     Indication: Vomiting
     Dosage: 40 MILLIGRAM, 2/DAY
     Route: 048
     Dates: start: 20220805
  2. PROPYLTHIOURACIL [Suspect]
     Active Substance: PROPYLTHIOURACIL
     Indication: Hyperthyroidism
     Dosage: 1 DOSAGE FORM, 1/DAY
     Route: 048
     Dates: start: 20220806, end: 20220812

REACTIONS (2)
  - Atrial flutter [Recovered/Resolved]
  - Agranulocytosis [Recovered/Resolved]

NARRATIVE: CASE EVENT DATE: 20220806
